FAERS Safety Report 6438102-0 (Version None)
Quarter: 2009Q4

REPORT INFORMATION
  Report Type: 
  Country: None (occurrence: None)
  Receive Date: 20091112
  Receipt Date: 20091102
  Transmission Date: 20100525
  Serious: Yes (Other)
  Sender: FDA-Public Use
  Company Number: DE-BRISTOL-MYERS SQUIBB COMPANY-14849053

PATIENT
  Age: 33 Year
  Sex: Male

DRUGS (7)
  1. HYDROXYUREA [Suspect]
     Dosage: 100 TABLETS,INTAKE NOT ASSURED.
     Route: 048
  2. IBUPROFEN [Suspect]
     Dosage: 50 TABLETS IBUPROFEN 600, INTAKE NOT ASSURED.
     Route: 048
  3. ALCOHOL [Suspect]
     Dosage: UNKNOWN AMOUNT
  4. ALLOPURINOL [Suspect]
     Dosage: 100 TABLETS ALLOPURINOL 300, INTAKE NOT ASSURED
     Route: 048
  5. GLEEVEC [Suspect]
     Dosage: 90 TABLETS GLIVEC 400, INTAKE NOT ASSURED.
     Route: 048
  6. PANTOPRAZOLE SODIUM [Suspect]
     Dosage: 65 TABLETS PANTOZOL 40, INTAKE NOT ASSURED.
     Route: 048
  7. PAROXETINE HCL [Suspect]
     Dosage: 100 TABLETS PAROXETIN 20, INTAKE NOT ASSURED.
     Route: 048

REACTIONS (6)
  - DIZZINESS [None]
  - MULTIPLE DRUG OVERDOSE INTENTIONAL [None]
  - NAUSEA [None]
  - SOMNOLENCE [None]
  - SUICIDE ATTEMPT [None]
  - VOMITING [None]
